FAERS Safety Report 4887410-3 (Version None)
Quarter: 2006Q1

REPORT INFORMATION
  Report Type: 
  Country: None (occurrence: None)
  Receive Date: 20060118
  Receipt Date: 20060112
  Transmission Date: 20060701
  Serious: Yes (Death)
  Sender: FDA-Public Use
  Company Number: THQ2006A00065

PATIENT
  Age: 66 Year
  Sex: Male

DRUGS (2)
  1. PIOGLITAZONE HCL [Suspect]
     Indication: DIABETES MELLITUS NON-INSULIN-DEPENDENT
     Dosage: 30 MG (1 D), PER ORAL
     Route: 048
     Dates: start: 20040308
  2. METFORMIN HYDROCHLORIDE [Suspect]
     Indication: DIABETES MELLITUS NON-INSULIN-DEPENDENT
     Dosage: PER ORAL
     Route: 048
     Dates: start: 20030411

REACTIONS (1)
  - RENAL CELL CARCINOMA STAGE UNSPECIFIED [None]
